FAERS Safety Report 6033792-9 (Version None)
Quarter: 2009Q1

REPORT INFORMATION
  Report Type: 
  Country: None (occurrence: None)
  Receive Date: 20090112
  Receipt Date: 20090108
  Transmission Date: 20090719
  Serious: Yes (Other)
  Sender: FDA-Public Use
  Company Number: BR-JNJFOC-20090101664

PATIENT
  Sex: Female
  Weight: 72 kg

DRUGS (1)
  1. ORTHO EVRA [Suspect]
     Indication: CONTRACEPTION
     Dosage: NORELGESTROMIN 6MG/ETHINYL ESTRADIOL 0.6MG
     Route: 062

REACTIONS (5)
  - ENDOMETRIOSIS [None]
  - FREQUENT BOWEL MOVEMENTS [None]
  - MIGRAINE [None]
  - NAUSEA [None]
  - VISUAL IMPAIRMENT [None]
